FAERS Safety Report 15431389 (Version 1)
Quarter: 2018Q3

REPORT INFORMATION
  Report Type: Spontaneous
  Country: GB (occurrence: GB)
  Receive Date: 20180926
  Receipt Date: 20180926
  Transmission Date: 20181010
  Serious: Yes (Hospitalization)
  Sender: FDA-Public Use
  Company Number: GB-ELI_LILLY_AND_COMPANY-GB201809006986

PATIENT
  Age: 40 Year
  Sex: Female

DRUGS (5)
  1. PEMETREXED. [Suspect]
     Active Substance: PEMETREXED
     Dosage: 3 DF, WEEKLY (1/W)
     Dates: start: 201302, end: 201305
  2. CISPLATIN. [Suspect]
     Active Substance: CISPLATIN
     Indication: NEOPLASM MALIGNANT
     Dosage: 6 DF, CYCLICAL
     Route: 065
     Dates: start: 201302, end: 201305
  3. PEMETREXED. [Suspect]
     Active Substance: PEMETREXED
     Dosage: 6 DF, CYCLICAL
     Dates: start: 201302, end: 201305
  4. PEMETREXED. [Suspect]
     Active Substance: PEMETREXED
     Dosage: 4 DF, WEEKLY (1/W)
     Dates: start: 201306, end: 201408
  5. PEMETREXED. [Suspect]
     Active Substance: PEMETREXED
     Indication: NEOPLASM MALIGNANT
     Dosage: 3 DF, WEEKLY (1/W)
     Dates: start: 201306, end: 201408

REACTIONS (3)
  - Neck pain [Unknown]
  - Headache [Unknown]
  - Neoplasm progression [Unknown]

NARRATIVE: CASE EVENT DATE: 201409
